FAERS Safety Report 7954235-1 (Version None)
Quarter: 2011Q4

REPORT INFORMATION
  Report Type: 
  Country: None (occurrence: None)
  Receive Date: 20111202
  Receipt Date: 20111121
  Transmission Date: 20120403
  Serious: Yes (Death)
  Sender: FDA-Public Use
  Company Number: FR-ROCHE-700060

PATIENT
  Sex: Male
  Weight: 74 kg

DRUGS (9)
  1. XELODA [Suspect]
     Indication: RECTAL CANCER
     Route: 065
     Dates: start: 20080516, end: 20080718
  2. PAZOPANIB [Suspect]
     Indication: RECTAL CANCER
     Route: 048
     Dates: start: 20090807, end: 20090924
  3. AVASTIN [Suspect]
     Indication: RECTAL CANCER
     Dosage: FORM:INFUSION
     Route: 042
     Dates: start: 20081013, end: 20090420
  4. CETUXIMAB [Suspect]
     Indication: RECTAL CANCER
     Route: 042
     Dates: start: 20090806, end: 20090917
  5. FLUOROURACIL [Suspect]
     Indication: RECTAL CANCER
     Route: 042
     Dates: start: 20081013, end: 20090420
  6. IRINOTECAN HCL [Suspect]
     Indication: RECTAL CANCER
     Route: 042
     Dates: start: 20090806, end: 20090910
  7. OXALIPLATIN [Suspect]
     Indication: RECTAL CANCER
     Route: 042
     Dates: start: 20080516, end: 20080718
  8. IRINOTECAN HCL [Suspect]
     Route: 042
     Dates: start: 20081013, end: 20090420
  9. LEUCOVORIN CALCIUM [Suspect]
     Indication: RECTAL CANCER
     Route: 042
     Dates: start: 20081013, end: 20090420

REACTIONS (3)
  - GASTROINTESTINAL FISTULA [None]
  - PERINEAL INFECTION [None]
  - PELVIC SEPSIS [None]
